FAERS Safety Report 11319054 (Version 2)
Quarter: 2015Q3

REPORT INFORMATION
  Report Type: Spontaneous
  Country: US (occurrence: US)
  Receive Date: 20150729
  Receipt Date: 20150909
  Transmission Date: 20151125
  Serious: No
  Sender: FDA-Public Use
  Company Number: US-ACTELION PHARMACEUTICALS US, INC.-A-NJ2015-118953

PATIENT
  Age: 70 Year
  Sex: Male

DRUGS (8)
  1. RIOCIGUAT [Concomitant]
     Active Substance: RIOCIGUAT
  2. REVATIO [Concomitant]
     Active Substance: SILDENAFIL CITRATE
  3. OPSUMIT [Suspect]
     Active Substance: MACITENTAN
     Indication: PULMONARY ARTERIAL HYPERTENSION
     Dosage: 10 MG, QD
     Route: 048
     Dates: start: 20150309
  4. TYVASO [Concomitant]
     Active Substance: TREPROSTINIL
     Dosage: 3 PUFF, QID
     Dates: start: 20150529
  5. MAGNESIUM [Concomitant]
     Active Substance: MAGNESIUM
  6. TYVASO [Concomitant]
     Active Substance: TREPROSTINIL
     Dosage: 9 BREATHS
     Route: 055
  7. OXYGEN. [Concomitant]
     Active Substance: OXYGEN
     Dosage: 5 L, UNK
  8. POTASSIUM [Concomitant]
     Active Substance: POTASSIUM

REACTIONS (6)
  - Neck mass [Unknown]
  - Muscle spasms [Unknown]
  - Insomnia [Unknown]
  - Fatigue [Unknown]
  - Dyspnoea [Unknown]
  - Chest pain [Unknown]
